FAERS Safety Report 7509681-7 (Version None)
Quarter: 2011Q2

REPORT INFORMATION
  Report Type: 
  Country: None (occurrence: None)
  Receive Date: 20110527
  Receipt Date: 20110516
  Transmission Date: 20111010
  Serious: Yes (Other)
  Sender: FDA-Public Use
  Company Number: SE-JNJFOC-20101204141

PATIENT
  Sex: Male
  Weight: 83.7 kg

DRUGS (4)
  1. USTEKINUMAB [Suspect]
     Route: 058
     Dates: start: 20101111
  2. METHOTREXATE [Suspect]
     Indication: PSORIASIS
  3. USTEKINUMAB [Suspect]
     Indication: PSORIASIS
     Route: 058
     Dates: start: 20091112
  4. USTEKINUMAB [Suspect]
     Route: 058
     Dates: start: 20100823

REACTIONS (1)
  - PROSTATE CANCER METASTATIC [None]
